FAERS Safety Report 14557976 (Version 1)
Quarter: 2018Q1

REPORT INFORMATION
  Report Type: Spontaneous
  Country: GB (occurrence: GB)
  Receive Date: 20180221
  Receipt Date: 20180221
  Transmission Date: 20180509
  Serious: Yes (Hospitalization, Other)
  Sender: FDA-Public Use
  Company Number: GB-TEVA-2018-GB-859317

PATIENT
  Age: 63 Year
  Sex: Male
  Weight: 73 kg

DRUGS (32)
  1. NYSTATIN. [Concomitant]
     Active Substance: NYSTATIN
     Indication: ANTIFUNGAL PROPHYLAXIS
     Dosage: 1 ML DAILY;
     Route: 061
     Dates: start: 20170413
  2. CALCICHEW [Concomitant]
     Active Substance: CALCIUM CARBONATE
     Indication: MINERAL SUPPLEMENTATION
     Dosage: 1 OT, BID
     Route: 048
     Dates: start: 20160829
  3. ZARZIO [Concomitant]
     Active Substance: FILGRASTIM
     Indication: GRANULOCYTES ABNORMAL
     Dosage: 300 MILLIGRAM DAILY;
     Route: 058
  4. DIFFLAM [Concomitant]
     Active Substance: BENZYDAMINE HYDROCHLORIDE
     Indication: GRAFT VERSUS HOST DISEASE
     Dosage: 10 ML DAILY;
     Route: 061
     Dates: start: 20170422
  5. HYLO-FORTE [Concomitant]
     Active Substance: HYALURONATE SODIUM
     Indication: DRY EYE
     Dosage: UNK (APPLY 6 TIMES )
     Route: 048
     Dates: start: 20170413
  6. METHYLPREDNISOLONE. [Concomitant]
     Active Substance: METHYLPREDNISOLONE
     Indication: GRAFT VERSUS HOST DISEASE
     Dosage: UNK
     Route: 042
     Dates: start: 20170427
  7. ALENDRONIC ACID [Concomitant]
     Active Substance: ALENDRONIC ACID
     Indication: BONE DISORDER
     Route: 048
     Dates: start: 20170828
  8. VALGANCICLOVIR. [Suspect]
     Active Substance: VALGANCICLOVIR
     Indication: ANTIVIRAL PROPHYLAXIS
     Dosage: 900 MILLIGRAM DAILY;
     Route: 048
     Dates: start: 20170830, end: 20171016
  9. OCTREOTIDE. [Concomitant]
     Active Substance: OCTREOTIDE
     Indication: GRAFT VERSUS HOST DISEASE
     Dosage: 1500 MICROGRAM DAILY; 500 OT, TID (500 MCG)
     Route: 058
     Dates: start: 20170427
  10. SODIUM CHLORIDE. [Concomitant]
     Active Substance: SODIUM CHLORIDE
     Indication: GRAFT VERSUS HOST DISEASE
     Dosage: 10 ML DAILY;
     Route: 061
  11. OMEPRAZOLE. [Concomitant]
     Active Substance: OMEPRAZOLE
     Indication: GASTRITIS PROPHYLAXIS
     Dosage: 80 MILLIGRAM DAILY;
     Route: 048
     Dates: start: 20160929
  12. COTRIMOXAZOLE [Concomitant]
     Active Substance: SULFAMETHOXAZOLE\TRIMETHOPRIM
     Indication: PROPHYLAXIS
     Dosage: 480 MILLIGRAM DAILY;
     Route: 048
     Dates: start: 20161103
  13. URSODEOXYCHOLIC ACID [Concomitant]
     Active Substance: URSODIOL
     Indication: PROPHYLAXIS
     Dosage: 1200 MILLIGRAM DAILY;
     Route: 048
     Dates: start: 20160929
  14. BISOPROLOL [Concomitant]
     Active Substance: BISOPROLOL
     Indication: PRODUCT USED FOR UNKNOWN INDICATION
     Dosage: 1.25 MILLIGRAM DAILY;
     Route: 048
  15. AMIKACIN [Suspect]
     Active Substance: AMIKACIN
     Indication: SEPSIS
     Dosage: UNK
     Route: 042
     Dates: start: 20171117, end: 20171119
  16. RUXOLITINIB [Suspect]
     Active Substance: RUXOLITINIB
     Indication: GRAFT VERSUS HOST DISEASE
     Dosage: 10 MILLIGRAM DAILY;
     Route: 048
     Dates: start: 20170616
  17. ARTIFICIAL TEARS [Concomitant]
     Active Substance: GLYCERIN\HYPROMELLOSES\POLYETHYLENE GLYCOL 400
     Indication: DRY EYE
     Dosage: 2 GTT DAILY;
     Route: 048
     Dates: start: 20170413
  18. FOLIC ACID. [Concomitant]
     Active Substance: FOLIC ACID
     Indication: VITAMIN SUPPLEMENTATION
     Dosage: 5 MILLIGRAM DAILY;
     Route: 065
     Dates: start: 20160929
  19. LIDOCAINE. [Concomitant]
     Active Substance: LIDOCAINE
     Indication: GRAFT VERSUS HOST DISEASE
     Dosage: 10 ML DAILY;
     Route: 061
     Dates: start: 20170413
  20. MIRTAZAPINE. [Concomitant]
     Active Substance: MIRTAZAPINE
     Indication: DEPRESSION
     Dosage: 45 MILLIGRAM DAILY;
     Route: 048
  21. HYDROCORTISONE. [Concomitant]
     Active Substance: HYDROCORTISONE
     Indication: GRAFT VERSUS HOST DISEASE
     Dosage: UNK
     Route: 061
     Dates: start: 20170413
  22. PRIVIGEN [Concomitant]
     Active Substance: HUMAN IMMUNOGLOBULIN G
     Indication: SECONDARY IMMUNODEFICIENCY
     Dosage: 30 MG, UNK
     Route: 042
     Dates: start: 20171003
  23. LOPERAMIDE [Concomitant]
     Active Substance: LOPERAMIDE
     Indication: GRAFT VERSUS HOST DISEASE
     Dosage: 8 MILLIGRAM DAILY;
     Route: 048
     Dates: start: 20170413
  24. PREDNISOLONE. [Concomitant]
     Active Substance: PREDNISOLONE
     Indication: GRAFT VERSUS HOST DISEASE
     Dosage: 5 MILLIGRAM DAILY; 5 MG, QD (5 MG IN 10 ML WATER USED AS MOUTHWASH)
     Route: 048
     Dates: start: 20170413
  25. BETNOVATE [Concomitant]
     Active Substance: BETAMETHASONE
     Indication: GRAFT VERSUS HOST DISEASE
     Route: 061
     Dates: start: 20170413
  26. AMLODIPINE [Concomitant]
     Active Substance: AMLODIPINE BESYLATE
     Indication: HYPERTENSION
     Dosage: 10 MILLIGRAM DAILY;
     Route: 048
     Dates: start: 20161013
  27. TACROLIMUS. [Concomitant]
     Active Substance: TACROLIMUS
     Indication: IMMUNOSUPPRESSION
     Dosage: 1 MILLIGRAM DAILY;
     Route: 048
     Dates: start: 201710
  28. DARBEPOETIN ALFA [Concomitant]
     Active Substance: DARBEPOETIN ALFA
     Indication: ANAEMIA
     Route: 058
     Dates: start: 20170828
  29. TACROLIMUS. [Concomitant]
     Active Substance: TACROLIMUS
     Indication: GRAFT VERSUS HOST DISEASE
  30. AZITHROMYCIN ANHYDROUS. [Concomitant]
     Active Substance: AZITHROMYCIN ANHYDROUS
     Indication: ANTIBIOTIC PROPHYLAXIS
     Route: 048
     Dates: start: 20171124
  31. BUDESONIDE. [Concomitant]
     Active Substance: BUDESONIDE
     Indication: GRAFT VERSUS HOST DISEASE
     Dosage: 9 MILLIGRAM DAILY;
     Route: 048
     Dates: start: 20170422
  32. POSACONAZOLE [Concomitant]
     Active Substance: POSACONAZOLE
     Indication: ANTIFUNGAL PROPHYLAXIS
     Dosage: 300 MILLIGRAM DAILY;
     Route: 048
     Dates: start: 20160929

REACTIONS (5)
  - Cytopenia [Not Recovered/Not Resolved]
  - Thrombocytopenia [Unknown]
  - Platelet count decreased [Unknown]
  - Acute kidney injury [Not Recovered/Not Resolved]
  - Product use in unapproved indication [Unknown]

NARRATIVE: CASE EVENT DATE: 20171008
